FAERS Safety Report 11169690 (Version 2)
Quarter: 2015Q3

REPORT INFORMATION
  Report Type: Spontaneous
  Country: VE (occurrence: VE)
  Receive Date: 20150605
  Receipt Date: 20150719
  Transmission Date: 20151125
  Serious: No
  Sender: FDA-Public Use
  Company Number: PHHY2015VE067646

PATIENT
  Age: 74 Year
  Sex: Male

DRUGS (4)
  1. STALEVO [Suspect]
     Active Substance: CARBIDOPA\ENTACAPONE\LEVODOPA
     Indication: PARKINSON^S DISEASE
     Dosage: 150 MG, QD
     Route: 048
     Dates: start: 201501
  2. MIRAPEX [Concomitant]
     Active Substance: PRAMIPEXOLE DIHYDROCHLORIDE
     Indication: PARKINSON^S DISEASE
     Dosage: 3 MG, QD
     Route: 065
     Dates: start: 20130712
  3. PANTOPRAZOLE [Concomitant]
     Active Substance: PANTOPRAZOLE SODIUM
     Indication: PROPHYLAXIS
     Dosage: 40 MG, QD
     Route: 065
  4. TAMSULON [Concomitant]
     Indication: HYPERTROPHY
     Dosage: 0.4 MG, QD
     Route: 065

REACTIONS (6)
  - Excessive cerumen production [Unknown]
  - Hypoacusis [Recovered/Resolved]
  - Sciatica [Recovering/Resolving]
  - Fear [Unknown]
  - Abdominal pain upper [Recovered/Resolved]
  - Influenza [Recovered/Resolved]

NARRATIVE: CASE EVENT DATE: 201505
